FAERS Safety Report 5618814-9 (Version None)
Quarter: 2008Q1

REPORT INFORMATION
  Report Type: 
  Country: None (occurrence: None)
  Receive Date: 20080204
  Receipt Date: 20080125
  Transmission Date: 20080703
  Serious: Yes (Other)
  Sender: FDA-Public Use
  Company Number: 163-21880-07091425

PATIENT
  Age: 50 Year
  Sex: Female

DRUGS (2)
  1. REVLIMID [Suspect]
     Indication: MULTIPLE MYELOMA
     Dosage: 25 MG, 1 IN 1 D, ORAL : 25 MG, 1 IN 1 D, ORAL
     Route: 048
     Dates: start: 20070822, end: 20070901
  2. REVLIMID [Suspect]
     Indication: MULTIPLE MYELOMA
     Dosage: 25 MG, 1 IN 1 D, ORAL : 25 MG, 1 IN 1 D, ORAL
     Route: 048
     Dates: start: 20071101

REACTIONS (2)
  - BLOOD HUMAN CHORIONIC GONADOTROPIN INCREASED [None]
  - TREATMENT NONCOMPLIANCE [None]
